FAERS Safety Report 13944837 (Version 1)
Quarter: 2017Q3

REPORT INFORMATION
  Report Type: Spontaneous
  Country: US (occurrence: US)
  Receive Date: 20170907
  Receipt Date: 20170907
  Transmission Date: 20171128
  Serious: No
  Sender: FDA-Public Use
  Company Number: US-ROCHE-1463514

PATIENT
  Age: 42 Year
  Sex: Female

DRUGS (1)
  1. RITUXAN [Suspect]
     Active Substance: RITUXIMAB
     Indication: RHEUMATOID ARTHRITIS
     Dosage: AT WEEK 0, STRENGTH: 500MG/50ML
     Route: 042

REACTIONS (3)
  - Rash erythematous [Unknown]
  - Heart rate irregular [Unknown]
  - Pruritus [Unknown]
